FAERS Safety Report 9280043 (Version 1)
Quarter: 2013Q2

REPORT INFORMATION
  Report Type: Spontaneous
  Country: US (occurrence: US)
  Receive Date: 20130509
  Receipt Date: 20130509
  Transmission Date: 20140414
  Serious: No
  Sender: FDA-Public Use
  Company Number: US-009507513-1305USA003286

PATIENT
  Sex: Female

DRUGS (2)
  1. AZASITE [Suspect]
     Dosage: 1 DROP IN EACH EYE TWICE DAILY FOR TWO DAYS
     Route: 047
  2. AZASITE [Suspect]
     Dosage: 1 DROP IN EACH EYE TWICE DAILY FOR 28 DAYS
     Route: 047

REACTIONS (2)
  - Inappropriate schedule of drug administration [Unknown]
  - No adverse event [Unknown]
